FAERS Safety Report 13763932 (Version 4)
Quarter: 2017Q3

REPORT INFORMATION
  Report Type: Spontaneous
  Country: JP (occurrence: JP)
  Receive Date: 20170718
  Receipt Date: 20170906
  Transmission Date: 20171127
  Serious: No
  Sender: FDA-Public Use
  Company Number: JP-TAKEDA-2017TUS014836

PATIENT
  Age: 73 Year
  Sex: Male
  Weight: 53.5 kg

DRUGS (25)
  1. PREMINENT [Concomitant]
     Active Substance: HYDROCHLOROTHIAZIDE\LOSARTAN POTASSIUM
     Indication: HYPERTENSION
     Dosage: 1 DF, QD
     Route: 048
     Dates: start: 20120221, end: 20140325
  2. NU-LOTAN [Concomitant]
     Active Substance: LOSARTAN POTASSIUM
     Indication: HYPERTENSION
     Dosage: 50 MG, QD
     Route: 048
     Dates: start: 20140325, end: 20141001
  3. PERSANTINE [Concomitant]
     Active Substance: DIPYRIDAMOLE
     Indication: CHRONIC KIDNEY DISEASE
     Dosage: 150 MG, BID
     Route: 048
     Dates: start: 20140319
  4. AZOSEMIDE [Concomitant]
     Active Substance: AZOSEMIDE
     Indication: CARDIAC FAILURE CONGESTIVE
     Dosage: 15 MG, QD
     Route: 048
     Dates: start: 20161210
  5. FEBURIC [Suspect]
     Active Substance: FEBUXOSTAT
     Dosage: 40 MG, QD
     Route: 048
     Dates: start: 20150828, end: 20151221
  6. FEBURIC [Suspect]
     Active Substance: FEBUXOSTAT
     Dosage: UNK
  7. AMARYL [Concomitant]
     Active Substance: GLIMEPIRIDE
     Indication: TYPE 2 DIABETES MELLITUS
     Dosage: 1 MG, QD
     Route: 048
     Dates: start: 20131022, end: 20140930
  8. TRAZENTA [Concomitant]
     Active Substance: LINAGLIPTIN
     Indication: TYPE 2 DIABETES MELLITUS
     Dosage: 5 MG, QD
     Route: 048
     Dates: start: 20141001
  9. CARVEDILOL. [Concomitant]
     Active Substance: CARVEDILOL
     Indication: CARDIAC FAILURE CONGESTIVE
     Dosage: 10 MG, QD
     Route: 048
     Dates: start: 20161210
  10. ARGAMATE [Concomitant]
     Active Substance: CALCIUM POLYSTYRENE SULFONATE
     Indication: HYPERKALAEMIA
     Dosage: 25 G, BID
     Route: 048
     Dates: start: 20161210, end: 20170119
  11. FEBURIC [Suspect]
     Active Substance: FEBUXOSTAT
     Indication: HYPERURICAEMIA
     Dosage: 10 MG, QD
     Route: 048
     Dates: start: 20130618, end: 20130715
  12. EUGLUCON [Concomitant]
     Active Substance: GLYBURIDE
     Indication: TYPE 2 DIABETES MELLITUS
     Dosage: 2.5 MG, QD
     Route: 048
     Dates: start: 20070113, end: 20131021
  13. MEVALOTIN [Concomitant]
     Active Substance: PRAVASTATIN SODIUM
     Indication: DYSLIPIDAEMIA
     Dosage: 10 MG, QD
     Route: 048
     Dates: start: 20120605, end: 20140819
  14. LIVALO [Concomitant]
     Active Substance: PITAVASTATIN CALCIUM
     Indication: DYSLIPIDAEMIA
     Dosage: 1 MG, QD
     Route: 048
     Dates: start: 20140820
  15. PLAVIX [Concomitant]
     Active Substance: CLOPIDOGREL BISULFATE
     Indication: AORTIC STENOSIS
     Dosage: 75 MG, QD
     Route: 048
     Dates: start: 20161122
  16. ARTIST [Concomitant]
     Active Substance: CARVEDILOL
     Indication: CARDIAC FAILURE CONGESTIVE
     Dosage: 10 MG, QD
     Route: 048
  17. FEBURIC [Suspect]
     Active Substance: FEBUXOSTAT
     Dosage: 20 MG, QD
     Route: 048
     Dates: start: 20130716, end: 20131021
  18. FEBURIC [Suspect]
     Active Substance: FEBUXOSTAT
     Dosage: 30 MG, QD
     Route: 048
     Dates: start: 20131022, end: 20150827
  19. FEBURIC [Suspect]
     Active Substance: FEBUXOSTAT
     Dosage: 50 MG, QD
     Route: 048
     Dates: start: 20151222, end: 20170610
  20. CANDESARTAN. [Suspect]
     Active Substance: CANDESARTAN
     Indication: CARDIAC FAILURE CONGESTIVE
     Dosage: 8 MG, QD
     Route: 048
     Dates: start: 20161210, end: 20170609
  21. AMLODIN [Concomitant]
     Active Substance: AMLODIPINE BESYLATE
     Indication: HYPERTENSION
     Dosage: 10 MG, QD
     Route: 048
     Dates: start: 20130312, end: 20170119
  22. AMLODIN [Concomitant]
     Active Substance: AMLODIPINE BESYLATE
     Dosage: 5 MG, QD
     Route: 048
     Dates: start: 20170120
  23. RENIVACE [Concomitant]
     Active Substance: ENALAPRIL
     Indication: CHRONIC KIDNEY DISEASE
     Dosage: 2.5 MG, QD
     Route: 048
     Dates: start: 20140319
  24. KALIMATE [Concomitant]
     Active Substance: CALCIUM POLYSTYRENE SULFONATE
     Indication: HYPERKALAEMIA
     Dosage: 25 G, BID
     Route: 048
     Dates: start: 20170120
  25. DIART [Concomitant]
     Active Substance: AZOSEMIDE
     Dosage: 15 MG, QD
     Route: 048

REACTIONS (1)
  - Drug eruption [Recovering/Resolving]

NARRATIVE: CASE EVENT DATE: 20170414
